FAERS Safety Report 7813339-4 (Version None)
Quarter: 2011Q4

REPORT INFORMATION
  Report Type: 
  Country: None (occurrence: None)
  Receive Date: 20111013
  Receipt Date: 20111003
  Transmission Date: 20120403
  Serious: Yes (Death, Other)
  Sender: FDA-Public Use
  Company Number: US-MPIJNJ-2011-04690

PATIENT
  Sex: Male

DRUGS (3)
  1. DOXIL [Suspect]
     Indication: MULTIPLE MYELOMA
     Dosage: UNK
     Dates: start: 20090901
  2. DEXAMETHASONE [Suspect]
     Indication: MULTIPLE MYELOMA
  3. VELCADE [Suspect]
     Indication: MULTIPLE MYELOMA
     Dosage: UNK
     Dates: start: 20090901

REACTIONS (3)
  - DEATH [None]
  - BLOOD LACTATE DEHYDROGENASE INCREASED [None]
  - RENAL IMPAIRMENT [None]
